FAERS Safety Report 25599317 (Version 1)
Quarter: 2025Q3

REPORT INFORMATION
  Report Type: Spontaneous
  Country: EU (occurrence: EU)
  Receive Date: 20250724
  Receipt Date: 20250724
  Transmission Date: 20251020
  Serious: Yes (Hospitalization, Other)
  Sender: CELLTRION
  Company Number: EU-AMGEN-ITASP2025063260

PATIENT

DRUGS (2)
  1. ADALIMUMAB [Suspect]
     Active Substance: ADALIMUMAB
     Indication: Psoriasis
     Route: 065
  2. LEVOFLOXACIN [Suspect]
     Active Substance: LEVOFLOXACIN
     Indication: Pericardial effusion
     Route: 065

REACTIONS (4)
  - Pleuropericarditis [Recovered/Resolved]
  - Antinuclear antibody positive [Unknown]
  - Off label use [Unknown]
  - Therapy interrupted [Unknown]
